FAERS Safety Report 17391505 (Version 2)
Quarter: 2020Q1

REPORT INFORMATION
  Report Type: Spontaneous
  Country: US (occurrence: US)
  Receive Date: 20200207
  Receipt Date: 20200304
  Transmission Date: 20200409
  Serious: Yes (Other)
  Sender: FDA-Public Use
  Company Number: NVSC2020US025395

PATIENT
  Age: 7 Year
  Sex: Male
  Weight: 49.8 kg

DRUGS (3)
  1. MEKINIST [Suspect]
     Active Substance: TRAMETINIB DIMETHYL SULFOXIDE
     Dosage: UNK(0.5MG M-SA, 1MG SUN)
     Route: 048
     Dates: start: 20181221, end: 20191220
  2. HYDROCORTISONE. [Concomitant]
     Active Substance: HYDROCORTISONE
     Indication: ADRENAL INSUFFICIENCY
     Dosage: UNK (5MG AM, 2.5MG AFTERNOON AND 2.5MG QHS)
     Route: 048
  3. MEKINIST [Suspect]
     Active Substance: TRAMETINIB DIMETHYL SULFOXIDE
     Indication: ASTROCYTOMA, LOW GRADE
     Dosage: UNK(0.5MG EVERY OTHER DAY ALT WITH 1MG EVERY)
     Route: 048
     Dates: start: 20171222, end: 20181221

REACTIONS (3)
  - Osteonecrosis [Not Recovered/Not Resolved]
  - Gait disturbance [Unknown]
  - Pain in extremity [Unknown]

NARRATIVE: CASE EVENT DATE: 20191219
